FAERS Safety Report 8603347-8 (Version None)
Quarter: 2012Q3

REPORT INFORMATION
  Report Type: 
  Country: None (occurrence: None)
  Receive Date: 20120817
  Receipt Date: 20120813
  Transmission Date: 20120928
  Serious: Yes (Death, Hospitalization)
  Sender: FDA-Public Use
  Company Number: DE-CELGENEUS-062-50794-12040188

PATIENT
  Age: 80 Year
  Sex: Male
  Weight: 75 kg

DRUGS (8)
  1. VIDAZA [Suspect]
     Dosage: 145 MILLIGRAM
     Route: 058
     Dates: start: 20120220, end: 20120228
  2. VANCOMYCIN [Concomitant]
     Route: 065
  3. MEROPENEM [Concomitant]
     Route: 065
  4. ARMODAFINIL [Concomitant]
     Route: 065
  5. DIURETICS [Concomitant]
     Route: 065
  6. NITRATE [Concomitant]
     Route: 065
  7. VIDAZA [Suspect]
     Dosage: 145 MILLIGRAM
     Route: 058
     Dates: start: 20120319, end: 20120327
  8. MORPHINE [Concomitant]
     Route: 065

REACTIONS (6)
  - PULMONARY OEDEMA [None]
  - CARDIAC FAILURE [None]
  - SEPSIS [None]
  - PANCYTOPENIA [None]
  - ABSCESS SWEAT GLAND [None]
  - PNEUMONIA [None]
